FAERS Safety Report 11278010 (Version 1)
Quarter: 2015Q3

REPORT INFORMATION
  Report Type: Spontaneous
  Country: US (occurrence: US)
  Receive Date: 20150717
  Receipt Date: 20150717
  Transmission Date: 20151125
  Serious: No
  Sender: FDA-Public Use
  Company Number: US-LEO PHARMA-235507

PATIENT
  Age: 70 Year
  Sex: Female

DRUGS (1)
  1. PICATO [Suspect]
     Active Substance: INGENOL MEBUTATE
     Indication: ACTINIC KERATOSIS

REACTIONS (3)
  - Application site scar [Unknown]
  - Incorrect drug administration duration [Unknown]
  - Application site reaction [Unknown]
